FAERS Safety Report 14281939 (Version 1)
Quarter: 2017Q4

REPORT INFORMATION
  Report Type: Spontaneous
  Country: US (occurrence: US)
  Receive Date: 20171213
  Receipt Date: 20171213
  Transmission Date: 20180321
  Serious: No
  Sender: FDA-Public Use
  Company Number: US-ELI_LILLY_AND_COMPANY-US201711011620

PATIENT
  Age: 54 Year
  Sex: Male

DRUGS (1)
  1. TALTZ [Suspect]
     Active Substance: IXEKIZUMAB
     Indication: PRODUCT USED FOR UNKNOWN INDICATION
     Dosage: 80 MG, EVERY FOUR WEEKS
     Route: 065

REACTIONS (7)
  - Drug ineffective [Unknown]
  - Injection site pain [Recovered/Resolved]
  - Dry skin [Unknown]
  - Pain of skin [Unknown]
  - Skin exfoliation [Unknown]
  - Drug dose omission [Unknown]
  - Scab [Unknown]

NARRATIVE: CASE EVENT DATE: 2016
